FAERS Safety Report 12311115 (Version 1)
Quarter: 2016Q2

REPORT INFORMATION
  Report Type: Spontaneous
  Country: US (occurrence: US)
  Receive Date: 20160427
  Receipt Date: 20160427
  Transmission Date: 20160815
  Serious: No
  Sender: FDA-Public Use
  Company Number: US-PFIZER INC-2016226216

PATIENT
  Age: 48 Year
  Sex: Female

DRUGS (1)
  1. IBRANCE [Suspect]
     Active Substance: PALBOCICLIB
     Indication: BREAST CANCER
     Dosage: 125 MG, TAKE 1 CAPSULE DAYS 1-21 THEN 7 DAYS OFF (28 DAY CYCLE)
     Route: 048
     Dates: start: 201601

REACTIONS (1)
  - Diarrhoea [Unknown]
